FAERS Safety Report 7755440-X (Version None)
Quarter: 2011Q3

REPORT INFORMATION
  Report Type: 
  Country: None (occurrence: None)
  Receive Date: 20110830
  Receipt Date: 20101103
  Transmission Date: 20111222
  Serious: Yes (Life-Threatening)
  Sender: FDA-Public Use
  Company Number: 736857

PATIENT

DRUGS (1)
  1. ATROPINE SULFATE [Suspect]
     Indication: CARDIAC ARREST
     Dosage: 1 MG, ONCE, INTRAVENOUS
     Route: 042
     Dates: start: 20101007, end: 20100101

REACTIONS (2)
  - INCORRECT DOSE ADMINISTERED [None]
  - COMPLICATION OF DEVICE INSERTION [None]
